FAERS Safety Report 10555629 (Version 1)
Quarter: 2014Q4

REPORT INFORMATION
  Report Type: Spontaneous
  Country: US (occurrence: US)
  Receive Date: 20141030
  Receipt Date: 20141030
  Transmission Date: 20150529
  Serious: Yes (Hospitalization)
  Sender: FDA-Public Use
  Company Number: US-CUBIST PHARMACEUTICALS, INC.-2014CBST001439

PATIENT

DRUGS (2)
  1. CUBICIN [Suspect]
     Active Substance: DAPTOMYCIN
     Indication: PRODUCT USED FOR UNKNOWN INDICATION
     Dosage: 6 MG/KG, QD
     Route: 042
     Dates: start: 20141003, end: 20141014
  2. CUBICIN [Suspect]
     Active Substance: DAPTOMYCIN
     Dosage: 450 MG, QD
     Route: 042
     Dates: start: 20141003, end: 20141014

REACTIONS (2)
  - Palpitations [Recovered/Resolved]
  - Pyrexia [Recovered/Resolved]
